FAERS Safety Report 6659530-4 (Version None)
Quarter: 2010Q1

REPORT INFORMATION
  Report Type: 
  Country: None (occurrence: None)
  Receive Date: 20100330
  Receipt Date: 20100316
  Transmission Date: 20100710
  Serious: Yes (Hospitalization)
  Sender: FDA-Public Use
  Company Number: GB-MYLANLABS-2010S1004509

PATIENT
  Age: 82 Year
  Sex: Female
  Weight: 70 kg

DRUGS (8)
  1. LANSOPRAZOLE [Suspect]
     Indication: DRUG USE FOR UNKNOWN INDICATION
     Route: 048
     Dates: end: 20100212
  2. AMLODIPINE [Concomitant]
     Indication: HYPERTENSION
     Route: 048
  3. ATORVASTATIN CALCIUM [Concomitant]
     Indication: HYPERLIPIDAEMIA
     Route: 048
  4. BETAHISTINE [Concomitant]
     Indication: MENIERE'S DISEASE
     Route: 048
  5. DICLOFENAC [Concomitant]
     Indication: ARTHRITIS
     Route: 048
  6. METOPROLOL TARTRATE [Concomitant]
     Indication: HYPERTENSION
     Route: 048
  7. QUININE SULFATE [Concomitant]
     Indication: MUSCLE SPASMS
     Route: 048
  8. SALAZOPYRIN [Concomitant]
     Indication: COLITIS
     Route: 048

REACTIONS (2)
  - HYPOCALCAEMIA [None]
  - HYPOMAGNESAEMIA [None]
